FAERS Safety Report 7773209 (Version 17)
Quarter: 2019Q3

REPORT INFORMATION
  Report Type: Report from Study
  Country: CA (occurrence: CA)
  Receive Date: 20110125
  Receipt Date: 20190910
  Transmission Date: 20191005
  Serious: Yes (Hospitalization, Other)
  Sender: FDA-Public Use
  Company Number: PHHY2011CA03345

PATIENT
  Age: 46 Year
  Sex: Female

DRUGS (6)
  1. ZOLOFT [Concomitant]
     Active Substance: SERTRALINE HYDROCHLORIDE
     Indication: PRODUCT USED FOR UNKNOWN INDICATION
     Dosage: UNK
     Route: 065
  2. VITAMIN B12 [Concomitant]
     Active Substance: CYANOCOBALAMIN
     Indication: PRODUCT USED FOR UNKNOWN INDICATION
     Dosage: UNK
     Route: 065
  3. SYNTHROID [Concomitant]
     Active Substance: LEVOTHYROXINE SODIUM
     Indication: PRODUCT USED FOR UNKNOWN INDICATION
     Dosage: UNK
     Route: 065
  4. SANDOSTATIN LAR DEPOT [Suspect]
     Active Substance: OCTREOTIDE ACETATE
     Indication: SHORT-BOWEL SYNDROME
     Dosage: 10 MG, QMO (ONCE A MONTH)
     Route: 030
     Dates: start: 20071115
  5. TRAZODONE [Concomitant]
     Active Substance: TRAZODONE HYDROCHLORIDE
     Indication: PRODUCT USED FOR UNKNOWN INDICATION
     Dosage: UNK
     Route: 065
  6. SANDOSTATIN LAR DEPOT [Suspect]
     Active Substance: OCTREOTIDE ACETATE
     Indication: CROHN^S DISEASE

REACTIONS (16)
  - Abdominal pain [Unknown]
  - Abscess oral [Unknown]
  - Pancreatic cyst [Recovered/Resolved]
  - Iritis [Recovering/Resolving]
  - Abscess oral [Recovered/Resolved]
  - Product use in unapproved indication [Unknown]
  - Arthralgia [Unknown]
  - Humerus fracture [Unknown]
  - Weight decreased [Unknown]
  - Intestinal perforation [Recovering/Resolving]
  - Osteomyelitis [Recovered/Resolved]
  - Pain in jaw [Unknown]
  - Malaise [Unknown]
  - Blood pressure decreased [Unknown]
  - Fall [Unknown]
  - Superficial injury of eye [Recovering/Resolving]

NARRATIVE: CASE EVENT DATE: 20071115
